FAERS Safety Report 7331322-2 (Version None)
Quarter: 2011Q1

REPORT INFORMATION
  Report Type: 
  Country: None (occurrence: None)
  Receive Date: 20110228
  Receipt Date: 20110228
  Transmission Date: 20110831
  Serious: Yes (Hospitalization, Other)
  Sender: FDA-Public Use
  Company Number: None

PATIENT
  Sex: Male
  Weight: 78.0187 kg

DRUGS (2)
  1. GLIPIZIDE [Suspect]
     Indication: TYPE 2 DIABETES MELLITUS
     Dosage: 5.0MG DAILY AM PO
     Route: 048
     Dates: start: 20100924, end: 20110107
  2. METFORMIN HCL [Suspect]
     Indication: TYPE 2 DIABETES MELLITUS
     Dosage: 1000MG 500MG 2X DAILY PO
     Route: 048
     Dates: start: 20100610, end: 20100908

REACTIONS (9)
  - DIABETIC RETINOPATHY [None]
  - BLOOD GLUCOSE INCREASED [None]
  - VISUAL IMPAIRMENT [None]
  - VISION BLURRED [None]
  - METAMORPHOPSIA [None]
  - PHOTOPHOBIA [None]
  - VITREOUS FLOATERS [None]
  - DEPRESSION [None]
  - RETINAL OEDEMA [None]
